FAERS Safety Report 13305586 (Version 2)
Quarter: 2017Q1

REPORT INFORMATION
  Report Type: Spontaneous
  Country: US (occurrence: US)
  Receive Date: 20170308
  Receipt Date: 20170313
  Transmission Date: 20170428
  Serious: Yes (Hospitalization, Other)
  Sender: FDA-Public Use
  Company Number: US-PFIZER INC-2017090565

PATIENT
  Age: 84 Year
  Sex: Male
  Weight: 84.35 kg

DRUGS (32)
  1. JAKAFI [Suspect]
     Active Substance: RUXOLITINIB
     Dosage: 5 MG, UNK (5 MG IN THE AM,
     Route: 048
  2. LASIX [Concomitant]
     Active Substance: FUROSEMIDE
     Dosage: UNK
  3. DOCUSATE [Concomitant]
     Active Substance: DOCUSATE
     Dosage: UNK
  4. JAKAFI [Suspect]
     Active Substance: RUXOLITINIB
     Indication: MYELOFIBROSIS
     Dosage: 5 MG, 2X/DAY
     Route: 048
     Dates: start: 20140114
  5. METHOCARBAMOL. [Concomitant]
     Active Substance: METHOCARBAMOL
     Dosage: UNK
  6. ZANTAC [Concomitant]
     Active Substance: RANITIDINE HYDROCHLORIDE
     Dosage: UNK
  7. LOVENOX [Concomitant]
     Active Substance: ENOXAPARIN SODIUM
     Dosage: UNK
  8. PROTONIX [Concomitant]
     Active Substance: PANTOPRAZOLE SODIUM
     Dosage: UNK
  9. COENZYME Q10 [Concomitant]
     Active Substance: UBIDECARENONE
     Dosage: UNK
  10. OMEGA 3 6 9 [Concomitant]
     Active Substance: FISH OIL
     Dosage: 1200 MG, UNK
  11. LIDODERM [Concomitant]
     Active Substance: LIDOCAINE
     Dosage: UNK
  12. ZOCOR [Concomitant]
     Active Substance: SIMVASTATIN
     Dosage: 10 MG, UNK
  13. JANUMET [Concomitant]
     Active Substance: METFORMIN HYDROCHLORIDE\SITAGLIPTIN PHOSPHATE
     Dosage: UNK
  14. JAKAFI [Suspect]
     Active Substance: RUXOLITINIB
     Dosage: 5 MG, 2X/DAY
     Route: 048
     Dates: start: 20150128
  15. FINASTERIDE. [Concomitant]
     Active Substance: FINASTERIDE
     Dosage: UNK
  16. MECLIZINE [Concomitant]
     Active Substance: MECLIZINE HYDROCHLORIDE
     Dosage: UNK
  17. BENADRYL [Concomitant]
     Active Substance: DIPHENHYDRAMINE HYDROCHLORIDE
     Dosage: UNK
  18. METOPROLOL. [Concomitant]
     Active Substance: METOPROLOL
     Dosage: UNK
  19. TOPROL XL [Concomitant]
     Active Substance: METOPROLOL SUCCINATE
     Dosage: 25 MG, UNK
  20. XANAX [Concomitant]
     Active Substance: ALPRAZOLAM
     Dosage: 0.5 MG, UNK
  21. GLUCOSAMINE [Concomitant]
     Active Substance: GLUCOSAMINE
     Dosage: UNK
  22. PRINIVIL [Concomitant]
     Active Substance: LISINOPRIL
     Dosage: UNK
  23. MULTIVITAMIN [Concomitant]
     Active Substance: VITAMINS
     Dosage: UNK
  24. VITAMIN K [Concomitant]
     Active Substance: PHYTONADIONE
     Dosage: UNK
  25. CRESTOR [Concomitant]
     Active Substance: ROSUVASTATIN CALCIUM
     Dosage: UNK
  26. ATORVASTATIN CALCIUM. [Concomitant]
     Active Substance: ATORVASTATIN CALCIUM
     Dosage: UNK
  27. ZESTRIL [Concomitant]
     Active Substance: LISINOPRIL
     Dosage: UNK
  28. LISINOPRIL. [Concomitant]
     Active Substance: LISINOPRIL
     Dosage: 5 MG, UNK
  29. ZOSYN [Suspect]
     Active Substance: PIPERACILLIN SODIUM\TAZOBACTAM SODIUM
     Dosage: 2.25 UNK, Q 8 HRS
  30. VITAMIN D3 [Concomitant]
     Active Substance: CHOLECALCIFEROL
     Dosage: UNK
  31. GLUCOSAMINE + CHONDROITIN PLUS [Concomitant]
     Dosage: UNK
  32. MULTIVITAMINS PLUS IRON [Concomitant]
     Dosage: UNK

REACTIONS (18)
  - Nausea [Unknown]
  - Asthenia [Unknown]
  - Fatigue [Unknown]
  - Pancreatic calcification [Unknown]
  - Abdominal pain [Unknown]
  - Vomiting [Unknown]
  - Anaemia [Unknown]
  - Benign mesenteric neoplasm [Unknown]
  - Thrombocytopenia [Unknown]
  - Flatulence [Unknown]
  - Oedema peripheral [Unknown]
  - Pancreatic atrophy [Unknown]
  - Small intestinal obstruction [Unknown]
  - Intestinal congestion [Unknown]
  - Acute kidney injury [Unknown]
  - Waldenstrom^s macroglobulinaemia [Unknown]
  - Diverticulum [Unknown]
  - Splenomegaly [Unknown]

NARRATIVE: CASE EVENT DATE: 201501
